FAERS Safety Report 6216744-5 (Version None)
Quarter: 2009Q2

REPORT INFORMATION
  Report Type: 
  Country: None (occurrence: None)
  Receive Date: 20090605
  Receipt Date: 20090603
  Transmission Date: 20091009
  Serious: Yes (Death)
  Sender: FDA-Public Use
  Company Number: PHEH2009US05672

PATIENT
  Sex: Male

DRUGS (3)
  1. AREDIA [Suspect]
     Dosage: MONTHLY
  2. THALIDOMIDE [Concomitant]
     Indication: MULTIPLE MYELOMA
  3. INTERFERON [Concomitant]
     Indication: MULTIPLE MYELOMA

REACTIONS (1)
  - VARICELLA [None]
